FAERS Safety Report 4773022-9 (Version None)
Quarter: 2005Q3

REPORT INFORMATION
  Report Type: 
  Country: None (occurrence: None)
  Receive Date: 20050916
  Receipt Date: 20050909
  Transmission Date: 20060218
  Serious: Yes (Other)
  Sender: FDA-Public Use
  Company Number: KII-2005-0018602

PATIENT
  Age: 45 Year
  Sex: Male

DRUGS (1)
  1. HYDROMORPHONE HCL [Suspect]
     Indication: INTENTIONAL MISUSE
     Dosage: SEE TEXT, ORAL
     Route: 048

REACTIONS (5)
  - DRUG ABUSER [None]
  - HYPOVENTILATION [None]
  - RESPIRATORY RATE DECREASED [None]
  - SOMNOLENCE [None]
  - SPEECH DISORDER [None]
